FAERS Safety Report 12329448 (Version 2)
Quarter: 2016Q2

REPORT INFORMATION
  Report Type: Spontaneous
  Country: US (occurrence: US)
  Receive Date: 20160503
  Receipt Date: 20160624
  Transmission Date: 20160815
  Serious: No
  Sender: FDA-Public Use
  Company Number: US-JNJFOC-20160405003

PATIENT
  Age: 84 Year
  Sex: Female
  Weight: 74.84 kg

DRUGS (2)
  1. PANCREAZE [Suspect]
     Active Substance: PANCRELIPASE AMYLASE\PANCRELIPASE LIPASE\PANCRELIPASE PROTEASE
     Indication: ERUCTATION
     Dosage: DOSE: 100MG 10000USP, 500USP
     Route: 048
     Dates: start: 20160304
  2. PANCREAZE [Suspect]
     Active Substance: PANCRELIPASE AMYLASE\PANCRELIPASE LIPASE\PANCRELIPASE PROTEASE
     Indication: HIATUS HERNIA
     Dosage: DOSE: 100MG 10000USP, 500USP
     Route: 048
     Dates: start: 20160304

REACTIONS (4)
  - Product use issue [Unknown]
  - Off label use [Unknown]
  - Eructation [Not Recovered/Not Resolved]
  - Product label issue [Unknown]

NARRATIVE: CASE EVENT DATE: 20160304
